FAERS Safety Report 21304908 (Version 2)
Quarter: 2022Q3

REPORT INFORMATION
  Report Type: Report from Study
  Country: US (occurrence: US)
  Receive Date: 20220907
  Receipt Date: 20220913
  Transmission Date: 20221027
  Serious: Yes (Hospitalization, Other)
  Sender: FDA-Public Use
  Company Number: US-BRISTOL-MYERS SQUIBB COMPANY-2022-064002

PATIENT
  Age: 62 Year
  Sex: Male
  Weight: 94.347 kg

DRUGS (6)
  1. REVLIMID [Suspect]
     Active Substance: LENALIDOMIDE
     Indication: Plasma cell myeloma
     Dosage: EXPIRY- 30-JUN-2024
     Route: 048
     Dates: start: 20210420
  2. REVLIMID [Suspect]
     Active Substance: LENALIDOMIDE
     Indication: Plasma cell myeloma refractory
  3. ASPIRIN [Concomitant]
     Active Substance: ASPIRIN
  4. DEXAMETHASONE [Concomitant]
     Active Substance: DEXAMETHASONE
  5. SINGULAIR [Concomitant]
     Active Substance: MONTELUKAST SODIUM
  6. NINLARO [Concomitant]
     Active Substance: IXAZOMIB CITRATE

REACTIONS (3)
  - Muscle spasms [Unknown]
  - Pneumonia [Recovering/Resolving]
  - Coronavirus infection [Unknown]

NARRATIVE: CASE EVENT DATE: 20220902
